FAERS Safety Report 8323121 (Version 5)
Quarter: 2012Q4

REPORT INFORMATION
  Report Type: Report from Study
  Country: GB (occurrence: GB)
  Receive Date: 20120105
  Receipt Date: 20121220
  Transmission Date: 20130627
  Serious: Yes (Hospitalization)
  Sender: FDA-Public Use
  Company Number: GB-GLAXOSMITHKLINE-Z0013494A

PATIENT
  Age: 72 Year
  Sex: Male
  Weight: 66.7 kg

DRUGS (4)
  1. OFATUMUMAB [Suspect]
     Indication: CHRONIC LYMPHOCYTIC LEUKAEMIA REFRACTORY
     Route: 042
     Dates: start: 20111115
  2. PREDNISOLONE [Concomitant]
     Dosage: 60MG Per day
     Route: 048
     Dates: start: 20111016, end: 20111109
  3. ACICLOVIR [Concomitant]
     Indication: ANTIVIRAL PROPHYLAXIS
     Dosage: 200MG Three times per day
     Route: 048
     Dates: start: 20100629
  4. OMEPRAZOLE [Concomitant]
     Indication: PROPHYLAXIS
     Dosage: 20MG Per day
     Route: 048
     Dates: start: 20111015

REACTIONS (5)
  - Neutropenic sepsis [Recovered/Resolved]
  - Renal failure acute [Recovered/Resolved]
  - Hydronephrosis [Recovered/Resolved]
  - Hypotension [Recovered/Resolved]
  - Abdominal pain [Recovering/Resolving]
